FAERS Safety Report 10167563 (Version 2)
Quarter: 2014Q2

REPORT INFORMATION
  Report Type: Spontaneous
  Country: DE (occurrence: DE)
  Receive Date: 20140512
  Receipt Date: 20140612
  Transmission Date: 20141212
  Serious: Yes (Death)
  Sender: FDA-Public Use
  Company Number: DE-B.I. PHARMACEUTICALS,INC./RIDGEFIELD-2014-BI-20713DE

PATIENT
  Age: 77 Year
  Sex: Female

DRUGS (9)
  1. PRADAXA [Suspect]
     Indication: CEREBROVASCULAR ACCIDENT
     Dosage: 150 MG
     Route: 048
     Dates: start: 201312
  2. DICLOFENAC [Suspect]
     Indication: PAIN
     Dosage: 75 MG
     Route: 048
     Dates: start: 201403
  3. NEXIUM MUPS [Concomitant]
     Indication: GASTRITIS
     Dosage: 40 MG
     Route: 065
  4. DELIX [Concomitant]
     Indication: CARDIAC FAILURE
     Dosage: 10 MG
     Route: 048
  5. TOREM [Concomitant]
     Indication: CARDIAC FAILURE
     Dosage: 10 MG
     Route: 048
  6. BELOC ZOK MITE [Concomitant]
     Indication: CARDIAC FAILURE
     Dosage: 95 MG
     Route: 048
  7. SPIRONOLACTON [Concomitant]
     Indication: CARDIAC FAILURE
     Dosage: 50 MG
     Route: 048
  8. FOLSAN [Concomitant]
     Indication: FOLATE DEFICIENCY
     Dosage: 5 MG
     Route: 048
  9. CIPRAMIL [Concomitant]
     Indication: DEPRESSION
     Dosage: 20 MG
     Route: 048

REACTIONS (1)
  - Upper gastrointestinal haemorrhage [Fatal]
